FAERS Safety Report 18564470 (Version 2)
Quarter: 2020Q4

REPORT INFORMATION
  Report Type: Report from Study
  Country: US (occurrence: US)
  Receive Date: 20201201
  Receipt Date: 20201214
  Transmission Date: 20210114
  Serious: Yes (Hospitalization, Disabling)
  Sender: FDA-Public Use
  Company Number: US-EMD SERONO-9199217

PATIENT
  Age: 40 Year
  Sex: Female

DRUGS (2)
  1. MAVENCLAD [Suspect]
     Active Substance: CLADRIBINE
     Indication: MULTIPLE SCLEROSIS
     Dosage: YEAR ONE THERAPY
     Route: 048
     Dates: start: 20191015
  2. MAVENCLAD [Suspect]
     Active Substance: CLADRIBINE
     Dosage: YEAR TWO THERAPY
     Route: 048
     Dates: end: 202010

REACTIONS (5)
  - Peroneal nerve palsy [Unknown]
  - Muscular weakness [Unknown]
  - Fatigue [Unknown]
  - Paraesthesia [Unknown]
  - Paraplegia [Not Recovered/Not Resolved]

NARRATIVE: CASE EVENT DATE: 202011
